FAERS Safety Report 6708422-0 (Version None)
Quarter: 2010Q2

REPORT INFORMATION
  Report Type: 
  Country: None (occurrence: None)
  Receive Date: 20100503
  Receipt Date: 20090305
  Transmission Date: 20101027
  Serious: No
  Sender: FDA-Public Use
  Company Number: US-ASTRAZENECA-2009UW05961

PATIENT
  Age: 62 Year
  Sex: Female

DRUGS (4)
  1. NEXIUM [Suspect]
     Indication: GASTROOESOPHAGEAL REFLUX DISEASE
     Route: 048
     Dates: start: 20081209
  2. NEXIUM [Suspect]
     Route: 048
  3. SYNTHROID [Concomitant]
  4. CARDIZEM LA [Concomitant]

REACTIONS (2)
  - BLOOD THYROID STIMULATING HORMONE DECREASED [None]
  - MALAISE [None]
